FAERS Safety Report 9013307 (Version 1)
Quarter: 2013Q1

REPORT INFORMATION
  Report Type: Spontaneous
  Country: US (occurrence: US)
  Receive Date: 20130115
  Receipt Date: 20130115
  Transmission Date: 20140127
  Serious: No
  Sender: FDA-Public Use
  Company Number: US-009507513-1301USA004831

PATIENT
  Age: 70 None
  Sex: Female

DRUGS (13)
  1. DULERA [Suspect]
     Dosage: UNK
     Route: 055
     Dates: start: 201212
  2. ADVAIR [Suspect]
     Indication: CHRONIC OBSTRUCTIVE PULMONARY DISEASE
     Dosage: 250/50 MCG, 1 PUFF BID
     Route: 055
     Dates: start: 2002, end: 201206
  3. ADVAIR [Suspect]
     Dosage: DOSE 500/50 MCG
     Route: 055
     Dates: start: 201206, end: 20121211
  4. SINGULAIR [Concomitant]
     Route: 048
  5. VENTOLIN (ALBUTEROL SULFATE) [Concomitant]
  6. LEVOTHYROXINE SODIUM [Concomitant]
  7. LISINOPRIL [Concomitant]
  8. NOVOLOG [Concomitant]
  9. INSULIN HUMAN [Concomitant]
  10. CLONAZEPAM [Concomitant]
  11. OXYGEN [Concomitant]
  12. PREDNISONE [Concomitant]
  13. VENTOLIN INHALER [Concomitant]

REACTIONS (2)
  - Dyspnoea [Not Recovered/Not Resolved]
  - Drug ineffective [Not Recovered/Not Resolved]
